FAERS Safety Report 10906311 (Version 1)
Quarter: 2015Q1

REPORT INFORMATION
  Report Type: Spontaneous
  Country: CZ (occurrence: CZ)
  Receive Date: 20150311
  Receipt Date: 20150311
  Transmission Date: 20150721
  Serious: Yes (Life-Threatening, Other)
  Sender: FDA-Public Use
  Company Number: PHHY2015CZ026225

PATIENT
  Age: 63 Year
  Sex: Female
  Weight: 74 kg

DRUGS (9)
  1. RANITIDINE [Concomitant]
     Active Substance: RANITIDINE\RANITIDINE HYDROCHLORIDE
     Route: 048
  2. KYTRIL [Concomitant]
     Active Substance: GRANISETRON HYDROCHLORIDE
     Dosage: UNK
     Route: 051
  3. RANITIDINE [Concomitant]
     Active Substance: RANITIDINE\RANITIDINE HYDROCHLORIDE
     Indication: PRODUCT USED FOR UNKNOWN INDICATION
     Dosage: UNK
     Route: 048
     Dates: start: 20150209, end: 20150209
  4. DEXAMED [Concomitant]
     Dosage: UNK
     Route: 051
  5. DEXAMED [Concomitant]
     Indication: PREMEDICATION
     Route: 051
     Dates: start: 20150209, end: 20150223
  6. ZODAC [Concomitant]
     Indication: PREMEDICATION
     Route: 048
     Dates: start: 20150209, end: 20150209
  7. PACLITAXEL EBEWE [Suspect]
     Active Substance: PACLITAXEL
     Indication: MALIGNANT PERITONEAL NEOPLASM
     Route: 042
     Dates: start: 20150209, end: 20150209
  8. ZODAC [Concomitant]
     Dosage: UNK
     Route: 048
  9. KYTRIL [Concomitant]
     Active Substance: GRANISETRON HYDROCHLORIDE
     Indication: PREMEDICATION
     Dosage: UNK
     Route: 051
     Dates: start: 20150209, end: 20150209

REACTIONS (3)
  - Erythema [Unknown]
  - Palpitations [Recovered/Resolved]
  - Back pain [Recovered/Resolved]

NARRATIVE: CASE EVENT DATE: 20150209
